FAERS Safety Report 15573658 (Version 1)
Quarter: 2018Q4

REPORT INFORMATION
  Report Type: Spontaneous
  Country: US (occurrence: US)
  Receive Date: 20181101
  Receipt Date: 20181101
  Transmission Date: 20190205
  Serious: No
  Sender: FDA-Public Use
  Company Number: US-AUROBINDO-AUR-APU-2018-049277

PATIENT
  Sex: Female

DRUGS (2)
  1. PRASUGREL TABLETS 10 MG [Suspect]
     Active Substance: PRASUGREL
     Indication: SURGERY
     Dosage: 01 A DAY
     Route: 065
  2. METOPROLOL. [Concomitant]
     Active Substance: METOPROLOL
     Indication: PRODUCT USED FOR UNKNOWN INDICATION
     Route: 065

REACTIONS (3)
  - Hypoacusis [Unknown]
  - Product substitution issue [Unknown]
  - Respiratory rate increased [Unknown]
